FAERS Safety Report 23882810 (Version 2)
Quarter: 2024Q2

REPORT INFORMATION
  Report Type: Report from Study
  Country: MX (occurrence: MX)
  Receive Date: 20240522
  Receipt Date: 20240603
  Transmission Date: 20240715
  Serious: Yes (Other)
  Sender: FDA-Public Use
  Company Number: MX-002147023-NVSC2024MX086781

PATIENT
  Age: 29 Year
  Sex: Male
  Weight: 90 kg

DRUGS (1)
  1. GILENYA [Suspect]
     Active Substance: FINGOLIMOD HYDROCHLORIDE
     Indication: Multiple sclerosis
     Dosage: 0.5 MG, QD
     Route: 048
     Dates: start: 20240206

REACTIONS (9)
  - Leukopenia [Unknown]
  - Pharyngotonsillitis [Not Recovered/Not Resolved]
  - Pharyngitis [Not Recovered/Not Resolved]
  - Oropharyngeal pain [Not Recovered/Not Resolved]
  - Renal disorder [Unknown]
  - Liver disorder [Unknown]
  - Blood uric acid abnormal [Recovered/Resolved]
  - Blood urea abnormal [Recovered/Resolved]
  - Amino acid level [Unknown]

NARRATIVE: CASE EVENT DATE: 20240501
